FAERS Safety Report 5511500-5 (Version None)
Quarter: 2007Q4

REPORT INFORMATION
  Report Type: 
  Country: None (occurrence: None)
  Receive Date: 20071109
  Receipt Date: 20071105
  Transmission Date: 20080405
  Serious: Yes (Congenital Anomaly)
  Sender: FDA-Public Use
  Company Number: A0693649A

PATIENT
  Sex: Female

DRUGS (1)
  1. PAXIL [Suspect]
     Indication: DRUG USE FOR UNKNOWN INDICATION

REACTIONS (13)
  - APHASIA [None]
  - BRAIN DAMAGE [None]
  - BRAIN HYPOXIA [None]
  - CARDIOVASCULAR DISORDER [None]
  - DEAFNESS [None]
  - DEVELOPMENTAL DELAY [None]
  - DRUG EXPOSURE DURING PREGNANCY [None]
  - HEART DISEASE CONGENITAL [None]
  - MALAISE [None]
  - MOTOR DYSFUNCTION [None]
  - NEONATAL DISORDER [None]
  - PAIN [None]
  - PERSISTENT FOETAL CIRCULATION [None]
